FAERS Safety Report 13992703 (Version 2)
Quarter: 2017Q4

REPORT INFORMATION
  Report Type: Spontaneous
  Country: US (occurrence: US)
  Receive Date: 20170920
  Receipt Date: 20171123
  Transmission Date: 20180321
  Serious: No
  Sender: FDA-Public Use
  Company Number: US-JNJFOC-20170908206

PATIENT
  Age: 38 Year
  Sex: Female
  Weight: 54.43 kg

DRUGS (8)
  1. STELARA [Suspect]
     Active Substance: USTEKINUMAB
     Indication: CROHN^S DISEASE
     Route: 058
     Dates: start: 20170824
  2. VITAMIN D [Concomitant]
     Active Substance: CHOLECALCIFEROL
     Dosage: STARTED MORE THAN 2 WEEKS.
     Route: 065
  3. STELARA [Suspect]
     Active Substance: USTEKINUMAB
     Indication: CROHN^S DISEASE
     Route: 058
     Dates: start: 20170629
  4. FLUTICASONE. [Concomitant]
     Active Substance: FLUTICASONE
     Dosage: STARTED MORE THAN 2 WEEKS AND USING AS NEEDED.
     Route: 065
  5. CORTIFOAM [Concomitant]
     Active Substance: HYDROCORTISONE ACETATE
     Route: 054
     Dates: start: 20170803
  6. SPIRONOLACTONE. [Concomitant]
     Active Substance: SPIRONOLACTONE
     Route: 065
  7. EPIDUO [Concomitant]
     Active Substance: ADAPALENE\BENZOYL PEROXIDE
     Dosage: AS NEEDED
     Route: 065
  8. IRON [Concomitant]
     Active Substance: IRON
     Dosage: STARTED MORE THAN 2 WEEKS
     Route: 065

REACTIONS (2)
  - Dizziness [Unknown]
  - Fistula discharge [Unknown]

NARRATIVE: CASE EVENT DATE: 20170829
